FAERS Safety Report 11239378 (Version 1)
Quarter: 2015Q3

REPORT INFORMATION
  Report Type: Spontaneous
  Country: US (occurrence: None)
  Receive Date: 20150701
  Receipt Date: 20150701
  Transmission Date: 20151125
  Serious: No
  Sender: FDA-Public Use
  Company Number: None

PATIENT
  Age: 16 Year
  Sex: Female
  Weight: 47.63 kg

DRUGS (5)
  1. ANTIBIOTICS CEFDINIR 300MG [Suspect]
     Active Substance: CEFDINIR
     Indication: PHARYNGEAL ERYTHEMA
     Dates: start: 20150625, end: 20150628
  2. ANTIBIOTICS CEFDINIR 300MG [Suspect]
     Active Substance: CEFDINIR
     Indication: SINUS DISORDER
     Dates: start: 20150625, end: 20150628
  3. DAILY VITAMIN [Concomitant]
     Active Substance: VITAMINS
  4. ADVIL [Concomitant]
     Active Substance: IBUPROFEN
  5. TYLENOL [Concomitant]
     Active Substance: ACETAMINOPHEN

REACTIONS (2)
  - Abdominal pain [None]
  - Retching [None]
